FAERS Safety Report 6472477-1 (Version None)
Quarter: 2009Q4

REPORT INFORMATION
  Report Type: 
  Country: None (occurrence: None)
  Receive Date: 20091130
  Receipt Date: 20091111
  Transmission Date: 20100525
  Serious: Yes (Other)
  Sender: FDA-Public Use
  Company Number: 8054803

PATIENT
  Age: 52 Year
  Sex: Female

DRUGS (6)
  1. KEPPRA [Suspect]
     Dosage: 200 MG 1/D IV
     Route: 042
     Dates: start: 20081001, end: 20081008
  2. VALPROIC ACID [Concomitant]
  3. PANTOPRAZOLE [Concomitant]
  4. MIDAZOLAM HCL [Concomitant]
  5. HIBOR [Concomitant]
  6. TAZOCEL [Concomitant]

REACTIONS (1)
  - THROMBOCYTOPENIA [None]
